FAERS Safety Report 14056579 (Version 2)
Quarter: 2020Q3

REPORT INFORMATION
  Report Type: Report from Study
  Country: PL (occurrence: PL)
  Receive Date: 20171006
  Receipt Date: 20171018
  Transmission Date: 20201104
  Serious: Yes (Hospitalization)
  Sender: FDA-Public Use
  Company Number: PL-JNJFOC-20170323821

PATIENT
  Age: 92 Year
  Sex: Male

DRUGS (5)
  1. IBRUTINIB [Suspect]
     Active Substance: IBRUTINIB
     Route: 048
  2. IBRUTINIB [Suspect]
     Active Substance: IBRUTINIB
     Indication: CHRONIC LYMPHOCYTIC LEUKAEMIA
     Route: 048
     Dates: start: 20160413, end: 20170218
  3. SIOFOR [Concomitant]
     Active Substance: METFORMIN HYDROCHLORIDE
     Indication: DIABETES MELLITUS
     Dosage: 500, QD
     Route: 048
  4. CO PRESTARIUM [Concomitant]
     Indication: HYPERTENSION
     Dosage: 10/10, QD
     Route: 048
  5. METOPROLOL TARTRATE. [Concomitant]
     Active Substance: METOPROLOL TARTRATE
     Indication: HYPERTENSION
     Dosage: 50, QD
     Route: 048

REACTIONS (3)
  - Cystitis haemorrhagic [Recovered/Resolved]
  - Pneumonia [Recovered/Resolved]
  - Cardiovascular insufficiency [Unknown]

NARRATIVE: CASE EVENT DATE: 20170217
